FAERS Safety Report 13890753 (Version 1)
Quarter: 2017Q3

REPORT INFORMATION
  Report Type: Spontaneous
  Country: US (occurrence: US)
  Receive Date: 20170822
  Receipt Date: 20170822
  Transmission Date: 20171127
  Serious: No
  Sender: FDA-Public Use
  Company Number: US-009507513-1708USA006495

PATIENT
  Age: 19 Year
  Sex: Female
  Weight: 43.54 kg

DRUGS (1)
  1. NEXPLANON [Suspect]
     Active Substance: ETONOGESTREL
     Indication: CONTRACEPTION
     Dosage: LEFT ARM IMPLANT, 3 YEARS
     Dates: start: 20170811

REACTIONS (6)
  - Implant site scar [Unknown]
  - Implant site pain [Unknown]
  - Breast pain [Unknown]
  - Chest pain [Unknown]
  - Breast enlargement [Unknown]
  - Breast discomfort [Unknown]

NARRATIVE: CASE EVENT DATE: 20170813
